FAERS Safety Report 7632646-1 (Version None)
Quarter: 2011Q3

REPORT INFORMATION
  Report Type: 
  Country: None (occurrence: None)
  Receive Date: 20110725
  Receipt Date: 20101108
  Transmission Date: 20111222
  Serious: No
  Sender: FDA-Public Use
  Company Number: US-BRISTOL-MYERS SQUIBB COMPANY-15372816

PATIENT
  Age: 84 Year
  Sex: Female

DRUGS (7)
  1. DILTIAZEM CD [Concomitant]
  2. TOPROL-XL [Concomitant]
  3. CALCIUM CARBONATE [Concomitant]
  4. GEMFIBROZIL [Concomitant]
  5. SYNTHROID [Concomitant]
  6. COUMADIN [Suspect]
     Indication: ATRIAL FIBRILLATION
     Dosage: 1MG ONCE A WEEK IN PAST,TO 0.5MG WEEKLY AND THEN MONTHLY
     Dates: start: 20090728
  7. MACROBID [Concomitant]

REACTIONS (1)
  - INTERNATIONAL NORMALISED RATIO INCREASED [None]
